FAERS Safety Report 7966063-1 (Version None)
Quarter: 2011Q4

REPORT INFORMATION
  Report Type: 
  Country: None (occurrence: None)
  Receive Date: 20111208
  Receipt Date: 20111205
  Transmission Date: 20120403
  Serious: Yes (Other)
  Sender: FDA-Public Use
  Company Number: BR-ABBOTT-11P-020-0880944-00

PATIENT
  Sex: Female
  Weight: 64 kg

DRUGS (6)
  1. WARFARIN SODIUM [Concomitant]
     Indication: THROMBOSIS
     Route: 048
  2. LEFLUNOMIDE [Concomitant]
     Indication: ARTHRITIS
     Route: 048
  3. ACETAMINOPHEN W/ CODEINE [Suspect]
     Indication: ARTHRITIS
     Route: 048
  4. HUMIRA [Suspect]
     Indication: RHEUMATOID ARTHRITIS
     Dosage: FORM STRENGTH: 40 MILLIGRAM
     Dates: start: 20110601
  5. ANTI-INFLAMMATORY (DICLOFENAC SODIUM) [Suspect]
     Indication: PRODUCT USED FOR UNKNOWN INDICATION
  6. METHOTREXATE [Concomitant]
     Indication: ARTHRITIS
     Route: 048

REACTIONS (2)
  - FALL [None]
  - THROMBOSIS [None]
